FAERS Safety Report 21410197 (Version 1)
Quarter: 2022Q4

REPORT INFORMATION
  Report Type: Spontaneous
  Country: US (occurrence: US)
  Receive Date: 20221005
  Receipt Date: 20221005
  Transmission Date: 20230113
  Serious: No
  Sender: FDA-Public Use
  Company Number: US-ALLERGAN-2223888US

PATIENT
  Age: 48 Year
  Sex: Male

DRUGS (2)
  1. UBRELVY [Suspect]
     Active Substance: UBROGEPANT
     Indication: Migraine
     Dosage: 100 MGX3 PER MONTHS
     Route: 048
     Dates: start: 20220716
  2. UBRELVY [Suspect]
     Active Substance: UBROGEPANT
     Dosage: 50 MGX3 PER MONTHS
     Route: 048
     Dates: start: 202205

REACTIONS (1)
  - Migraine [Not Recovered/Not Resolved]

NARRATIVE: CASE EVENT DATE: 20220719
